FAERS Safety Report 12936292 (Version 1)
Quarter: 2016Q4

REPORT INFORMATION
  Report Type: Spontaneous
  Country: US (occurrence: US)
  Receive Date: 20161113
  Receipt Date: 20161113
  Transmission Date: 20170207
  Serious: Yes (Disabling)
  Sender: FDA-Public Use
  Company Number: None

PATIENT
  Age: 44 Year
  Sex: Female
  Weight: 63 kg

DRUGS (13)
  1. MELATONIN [Concomitant]
     Active Substance: MELATONIN
  2. ATIVAN [Concomitant]
     Active Substance: LORAZEPAM
  3. SULCRAFATE [Concomitant]
  4. OMEPRAZOLE. [Concomitant]
     Active Substance: OMEPRAZOLE
  5. ZYRTEC [Concomitant]
     Active Substance: CETIRIZINE HYDROCHLORIDE
  6. VIVELLE DOT ESTROGEN PATCH [Concomitant]
  7. MAGNESIUM [Concomitant]
     Active Substance: MAGNESIUM
  8. HYDROXYZINE [Concomitant]
     Active Substance: HYDROXYZINE\HYDROXYZINE HYDROCHLORIDE
  9. FLONASE [Concomitant]
     Active Substance: FLUTICASONE PROPIONATE
  10. MONTELEUKAST [Suspect]
     Active Substance: MONTELUKAST SODIUM
     Indication: SINUSITIS
     Dosage: ?          QUANTITY:30 TABLET(S);?
     Route: 048
     Dates: start: 20161107, end: 20161113
  11. MONTELEUKAST [Suspect]
     Active Substance: MONTELUKAST SODIUM
     Indication: ASTHMA
     Dosage: ?          QUANTITY:30 TABLET(S);?
     Route: 048
     Dates: start: 20161107, end: 20161113
  12. HALCION [Concomitant]
     Active Substance: TRIAZOLAM
  13. ASTELIN [Concomitant]
     Active Substance: AZELASTINE HYDROCHLORIDE

REACTIONS (7)
  - Bladder spasm [None]
  - Urinary retention [None]
  - Therapeutic response unexpected [None]
  - Bladder pain [None]
  - Insomnia [None]
  - Acne [None]
  - Anxiety [None]

NARRATIVE: CASE EVENT DATE: 20161113
